FAERS Safety Report 6309143-9 (Version None)
Quarter: 2009Q3

REPORT INFORMATION
  Report Type: 
  Country: None (occurrence: None)
  Receive Date: 20090814
  Receipt Date: 20090420
  Transmission Date: 20100115
  Serious: No
  Sender: FDA-Public Use
  Company Number: A0781076A

PATIENT
  Sex: Male

DRUGS (1)
  1. COREG CR [Suspect]
     Dosage: 20MG UNKNOWN
     Route: 048

REACTIONS (1)
  - NIGHTMARE [None]
